FAERS Safety Report 7625406-9 (Version None)
Quarter: 2011Q3

REPORT INFORMATION
  Report Type: 
  Country: None (occurrence: None)
  Receive Date: 20110713
  Receipt Date: 20110628
  Transmission Date: 20111222
  Serious: Yes (Life-Threatening, Hospitalization)
  Sender: FDA-Public Use
  Company Number: 2011MA008259

PATIENT
  Age: 27 Year
  Sex: Male
  Weight: 65 kg

DRUGS (2)
  1. LIDOCAINE [Suspect]
     Indication: ANAESTHESIA
     Dosage: 4 ML
  2. EPINEPHRINE [Suspect]
     Indication: ANAESTHESIA
     Dosage: 1X

REACTIONS (6)
  - CIRCULATORY COLLAPSE [None]
  - VENTRICULAR ARRHYTHMIA [None]
  - CARDIAC ENZYMES INCREASED [None]
  - SUBARACHNOID HAEMORRHAGE [None]
  - SINUS TACHYCARDIA [None]
  - ENCEPHALOMALACIA [None]
